FAERS Safety Report 18966774 (Version 1)
Quarter: 2021Q1

REPORT INFORMATION
  Report Type: Spontaneous
  Country: US (occurrence: US)
  Receive Date: 20210303
  Receipt Date: 20210303
  Transmission Date: 20210420
  Serious: No
  Sender: FDA-Public Use
  Company Number: US-TEVA-2021-US-1886233

PATIENT
  Sex: Male

DRUGS (4)
  1. AMLODIPINE [Suspect]
     Active Substance: AMLODIPINE BESYLATE
     Indication: HYPERTENSION
     Route: 065
  2. TRIAMETERENE/HCTZ [Suspect]
     Active Substance: HYDROCHLOROTHIAZIDE\TRIAMTERENE
     Indication: HYPERTENSION
     Route: 065
  3. OLMESARTAN [Suspect]
     Active Substance: OLMESARTAN
     Indication: HYPERTENSION
     Route: 065
  4. LENVIMA [Suspect]
     Active Substance: LENVATINIB
     Indication: THYROID CANCER
     Route: 048
     Dates: start: 20200806

REACTIONS (3)
  - Oedema peripheral [Not Recovered/Not Resolved]
  - Impaired healing [Not Recovered/Not Resolved]
  - Scratch [Not Recovered/Not Resolved]

NARRATIVE: CASE EVENT DATE: 202008
